FAERS Safety Report 7643760-9 (Version None)
Quarter: 2011Q3

REPORT INFORMATION
  Report Type: 
  Country: None (occurrence: None)
  Receive Date: 20110722
  Receipt Date: 20110709
  Transmission Date: 20111222
  Serious: Yes (Hospitalization)
  Sender: FDA-Public Use
  Company Number: 2011AP001448

PATIENT
  Age: 40 Year
  Sex: Female

DRUGS (1)
  1. LITHIUM CARBONATE [Suspect]
     Indication: BIPOLAR DISORDER
     Dosage: 900 MG; QD;
     Route: 048

REACTIONS (4)
  - TOXICITY TO VARIOUS AGENTS [None]
  - HYPERCALCAEMIA [None]
  - HAEMODIALYSIS [None]
  - HYPERPARATHYROIDISM [None]
